FAERS Safety Report 12721904 (Version 1)
Quarter: 2016Q3

REPORT INFORMATION
  Report Type: Spontaneous
  Country: GB (occurrence: GB)
  Receive Date: 20160907
  Receipt Date: 20160907
  Transmission Date: 20161109
  Serious: Yes (Other)
  Sender: FDA-Public Use
  Company Number: GB-PFIZER INC-2016416446

PATIENT
  Age: 54 Year
  Sex: Female

DRUGS (2)
  1. METHOTREXATE SODIUM. [Suspect]
     Active Substance: METHOTREXATE SODIUM
     Dosage: UNK
     Route: 065
  2. SIMPONI [Suspect]
     Active Substance: GOLIMUMAB
     Dosage: 100 MG, UNK (ONCE VERY 4 WEEKS)
     Route: 058

REACTIONS (4)
  - Urinary tract infection [Unknown]
  - Knee arthroplasty [Unknown]
  - Drug ineffective [Unknown]
  - Neutrophil count decreased [Unknown]
